FAERS Safety Report 9772683 (Version 1)
Quarter: 2013Q4

REPORT INFORMATION
  Report Type: Spontaneous
  Country: FR (occurrence: FR)
  Receive Date: 20131219
  Receipt Date: 20131219
  Transmission Date: 20140711
  Serious: Yes (Other)
  Sender: FDA-Public Use
  Company Number: FR-JNJFOC-20131208641

PATIENT
  Age: 14 Year
  Sex: Male

DRUGS (8)
  1. CONCERTA [Suspect]
     Indication: DYSPRAXIA
     Route: 048
     Dates: start: 20130228, end: 201306
  2. CONCERTA [Suspect]
     Indication: DYSPRAXIA
     Route: 048
     Dates: start: 201309
  3. CONCERTA [Suspect]
     Indication: DYSPRAXIA
     Route: 048
     Dates: end: 201307
  4. CONCERTA [Suspect]
     Indication: DYSPRAXIA
     Route: 048
     Dates: end: 201308
  5. CONCERTA [Suspect]
     Indication: ATTENTION DEFICIT/HYPERACTIVITY DISORDER
     Route: 048
     Dates: start: 201309
  6. CONCERTA [Suspect]
     Indication: ATTENTION DEFICIT/HYPERACTIVITY DISORDER
     Route: 048
     Dates: end: 201308
  7. CONCERTA [Suspect]
     Indication: ATTENTION DEFICIT/HYPERACTIVITY DISORDER
     Route: 048
     Dates: start: 20130228, end: 201306
  8. CONCERTA [Suspect]
     Indication: ATTENTION DEFICIT/HYPERACTIVITY DISORDER
     Route: 048
     Dates: end: 201307

REACTIONS (2)
  - Inflammation [Recovered/Resolved]
  - Pyrexia [Recovered/Resolved]
